FAERS Safety Report 9969916 (Version 1)
Quarter: 2014Q1

REPORT INFORMATION
  Report Type: Spontaneous
  Country: US (occurrence: None)
  Receive Date: 20140305
  Receipt Date: 20140305
  Transmission Date: 20141002
  Serious: Yes (Death)
  Sender: FDA-Public Use
  Company Number: None

PATIENT
  Age: 50 Year
  Sex: Male
  Weight: 94.4 kg

DRUGS (1)
  1. HYDROMORPHONE [Suspect]
     Indication: PAIN
     Route: 042
     Dates: start: 20131204, end: 20131204

REACTIONS (2)
  - Respiratory depression [None]
  - Hypoxia [None]
